FAERS Safety Report 7272039-2 (Version None)
Quarter: 2011Q1

REPORT INFORMATION
  Report Type: 
  Country: None (occurrence: None)
  Receive Date: 20110131
  Receipt Date: 20110131
  Transmission Date: 20110831
  Serious: Yes (Other)
  Sender: FDA-Public Use
  Company Number: None

PATIENT
  Age: 76 Year
  Sex: Female

DRUGS (1)
  1. HYDROMORPHONE HCL [Suspect]
     Indication: PAIN
     Dosage: 1ML WITH BUPIVICANE AND NS EPIDURAL
     Route: 008
     Dates: start: 20110125, end: 20110128

REACTIONS (3)
  - MEDICATION ERROR [None]
  - PRODUCT LABEL ISSUE [None]
  - DRUG DISPENSING ERROR [None]
